FAERS Safety Report 4390971-4 (Version None)
Quarter: 2004Q3

REPORT INFORMATION
  Report Type: 
  Country: None (occurrence: None)
  Receive Date: 20040706
  Receipt Date: 20040623
  Transmission Date: 20050211
  Serious: Yes (Other)
  Sender: FDA-Public Use
  Company Number: A-CH2004-05388

PATIENT
  Age: 18 Month
  Sex: Male
  Weight: 10 kg

DRUGS (5)
  1. TRACLEER [Suspect]
     Indication: PULMONARY HYPERTENSION
     Dosage: SEE IMAGE
     Route: 048
     Dates: start: 20030823, end: 20040615
  2. TRACLEER [Suspect]
     Indication: PULMONARY HYPERTENSION
     Dosage: SEE IMAGE
     Route: 048
     Dates: start: 20040616
  3. LASIX [Concomitant]
  4. OXYGEN (OXYGEN) [Concomitant]
  5. POTASSIUM (POTASSIUM) [Concomitant]

REACTIONS (4)
  - PANCYTOPENIA [None]
  - PULMONARY HYPERTENSION [None]
  - REFUSAL OF TREATMENT BY RELATIVE [None]
  - SINUS TACHYCARDIA [None]
